FAERS Safety Report 22013669 (Version 1)
Quarter: 2023Q1

REPORT INFORMATION
  Report Type: Spontaneous
  Country: US (occurrence: US)
  Receive Date: 20230220
  Receipt Date: 20230220
  Transmission Date: 20230418
  Serious: Yes (Other)
  Sender: FDA-Public Use
  Company Number: US-drreddys-LIT/USA/23/0161266

PATIENT
  Age: 52 Year
  Sex: Male

DRUGS (2)
  1. AMIODARONE HYDROCHLORIDE [Suspect]
     Active Substance: AMIODARONE HYDROCHLORIDE
     Indication: Ventricular fibrillation
  2. IBRUTINIB [Concomitant]
     Active Substance: IBRUTINIB
     Indication: Central nervous system lymphoma
     Dosage: TAKING FOR LAST 4 MONTHS

REACTIONS (1)
  - Drug ineffective [Unknown]
